FAERS Safety Report 14807175 (Version 1)
Quarter: 2018Q2

REPORT INFORMATION
  Report Type: Report from Study
  Country: US (occurrence: US)
  Receive Date: 20180425
  Receipt Date: 20180425
  Transmission Date: 20180711
  Serious: Yes (Hospitalization)
  Sender: FDA-Public Use
  Company Number: US-ACTELION-A-NJ2018-170344

PATIENT
  Age: 9 Year
  Sex: Male
  Weight: 25.85 kg

DRUGS (11)
  1. ASPIRIN. [Suspect]
     Active Substance: ASPIRIN
     Indication: PRODUCT USED FOR UNKNOWN INDICATION
     Dosage: 81 MG, QD
     Route: 048
  2. TRIGLYCERIDES [Concomitant]
  3. SILDENAFIL CITRATE. [Suspect]
     Active Substance: SILDENAFIL CITRATE
     Dosage: 30 MG, TID
     Route: 048
  4. UCERIS [Concomitant]
     Active Substance: BUDESONIDE
     Dosage: 9 MG, QD
     Route: 048
  5. TRACLEER [Suspect]
     Active Substance: BOSENTAN
     Indication: PULMONARY ARTERIAL HYPERTENSION
     Dosage: 31.25 MG, BID
     Route: 048
  6. SILDENAFIL CITRATE. [Suspect]
     Active Substance: SILDENAFIL CITRATE
     Indication: PRODUCT USED FOR UNKNOWN INDICATION
     Dosage: 3 ML, TID
     Route: 048
  7. ENALAPRIL [Suspect]
     Active Substance: ENALAPRIL
     Indication: PRODUCT USED FOR UNKNOWN INDICATION
     Dosage: 2.5 MG, BID
     Route: 048
  8. WARFARIN [Concomitant]
     Active Substance: WARFARIN
  9. TRACLEER [Suspect]
     Active Substance: BOSENTAN
     Dosage: 62.5 MG, BID
     Route: 048
  10. SYNTHROID [Concomitant]
     Active Substance: LEVOTHYROXINE SODIUM
     Dosage: 62.5 MG, BID
     Route: 048
  11. ALDACTONE [Concomitant]
     Active Substance: SPIRONOLACTONE
     Dosage: 5 MG/ML, UNK
     Route: 048

REACTIONS (13)
  - Hypogammaglobulinaemia [Unknown]
  - Abdominal distension [Recovering/Resolving]
  - Periorbital oedema [Recovering/Resolving]
  - Pharyngitis streptococcal [Unknown]
  - Bradycardia [Unknown]
  - Swelling [Recovering/Resolving]
  - Generalised oedema [Recovering/Resolving]
  - Hypoalbuminaemia [Recovering/Resolving]
  - Otitis media acute [Unknown]
  - Ear pain [Unknown]
  - Protein-losing gastroenteropathy [Recovering/Resolving]
  - Hepatomegaly [Unknown]
  - Cough [Unknown]

NARRATIVE: CASE EVENT DATE: 20180315
